FAERS Safety Report 5818830-8 (Version None)
Quarter: 2008Q3

REPORT INFORMATION
  Report Type: 
  Country: None (occurrence: None)
  Receive Date: 20080721
  Receipt Date: 20080721
  Transmission Date: 20090109
  Serious: Yes (Death, Life-Threatening)
  Sender: FDA-Public Use
  Company Number: None

PATIENT
  Sex: Female
  Weight: 63.5036 kg

DRUGS (1)
  1. DIGITEK 0.125MG [Suspect]
     Dosage: 1 TABLET DAILY PO
     Route: 048
     Dates: start: 20080102, end: 20080121

REACTIONS (8)
  - ANOREXIA [None]
  - ASTHENIA [None]
  - CONFUSIONAL STATE [None]
  - LIVER INJURY [None]
  - MYOCARDIAL INFARCTION [None]
  - RENAL DISORDER [None]
  - SOMNOLENCE [None]
  - THERAPEUTIC AGENT TOXICITY [None]
